FAERS Safety Report 8292825-X (Version None)
Quarter: 2012Q2

REPORT INFORMATION
  Report Type: 
  Country: None (occurrence: None)
  Receive Date: 20120417
  Receipt Date: 20120412
  Transmission Date: 20120825
  Serious: Yes (Hospitalization, Other)
  Sender: FDA-Public Use
  Company Number: US-ABBOTT-12P-163-0926207-00

PATIENT
  Sex: Male
  Weight: 116.22 kg

DRUGS (9)
  1. ANDROGEL [Suspect]
     Indication: BLOOD TESTOSTERONE DECREASED
     Dosage: SIX PUMPS ONCE DAILY
     Route: 061
     Dates: start: 20110101
  2. ANDROGEL [Suspect]
     Indication: BLOOD TESTOSTERONE DECREASED
     Dosage: EIGHT PUMPS ONCE DAILY
     Route: 061
     Dates: start: 20120101
  3. UNKNOWN ANESTHESIA [Suspect]
     Indication: CARDIAC PACEMAKER INSERTION
     Dates: start: 20120330, end: 20120330
  4. ANDROGEL [Suspect]
     Dosage: EIGHT PUMPS
     Route: 061
     Dates: end: 20120101
  5. ASPIRIN [Concomitant]
     Indication: PRODUCT USED FOR UNKNOWN INDICATION
     Route: 048
  6. PRILOSEC [Concomitant]
     Indication: PRODUCT USED FOR UNKNOWN INDICATION
     Route: 048
  7. POTASSIUM CITRATE [Concomitant]
     Indication: NEPHROLITHIASIS
     Dates: end: 20120330
  8. SAW PALMETTO [Concomitant]
     Indication: PROSTATOMEGALY
     Dates: start: 20120401
  9. COUMADIN [Suspect]
     Indication: CARDIAC PACEMAKER INSERTION
     Dates: start: 20120330, end: 20120401

REACTIONS (23)
  - SLEEP APNOEA SYNDROME [None]
  - SINUS CONGESTION [None]
  - ASTHENIA [None]
  - PROSTATOMEGALY [None]
  - HYPERHIDROSIS [None]
  - DRUG INEFFECTIVE [None]
  - CARDIAC FAILURE [None]
  - FALL [None]
  - BRONCHITIS [None]
  - DYSPNOEA [None]
  - CONSTIPATION [None]
  - UPPER RESPIRATORY TRACT CONGESTION [None]
  - CARDIAC ARREST [None]
  - COUGH [None]
  - HEAD INJURY [None]
  - BLOOD POTASSIUM INCREASED [None]
  - SUFFOCATION FEELING [None]
  - HEART RATE INCREASED [None]
  - RESTLESSNESS [None]
  - PYREXIA [None]
  - NERVE COMPRESSION [None]
  - CONTUSION [None]
  - ERECTILE DYSFUNCTION [None]
